FAERS Safety Report 10668307 (Version 1)
Quarter: 2014Q4

REPORT INFORMATION
  Report Type: Spontaneous
  Country: CA (occurrence: CA)
  Receive Date: 20141222
  Receipt Date: 20141222
  Transmission Date: 20150529
  Serious: Yes (Hospitalization)
  Sender: FDA-Public Use
  Company Number: CA-SA-2014SA172710

PATIENT
  Age: 68 Year
  Sex: Male
  Weight: 69 kg

DRUGS (9)
  1. GLUCOPHAGE [Suspect]
     Active Substance: METFORMIN HYDROCHLORIDE
     Route: 065
  2. DIAMICRON [Concomitant]
     Active Substance: GLICLAZIDE
  3. SPIRIVA [Concomitant]
     Active Substance: TIOTROPIUM BROMIDE MONOHYDRATE
     Dosage: 1 INHALATION/DAY
     Route: 055
  4. DIAMICRON [Concomitant]
     Active Substance: GLICLAZIDE
  5. ADVAIR HFA [Concomitant]
     Active Substance: FLUTICASONE PROPIONATE\SALMETEROL XINAFOATE
     Dosage: 250/25 MCG 2 INHALATIONS TWICE A DAY
  6. ATARAX [Concomitant]
     Active Substance: HYDROXYZINE\HYDROXYZINE HYDROCHLORIDE
     Dosage: EVERY 5 HOUR WHEN NEEDED
  7. AVAPRO [Suspect]
     Active Substance: IRBESARTAN
     Route: 065
  8. LASIX [Suspect]
     Active Substance: FUROSEMIDE
     Indication: OEDEMA PERIPHERAL
     Route: 065
  9. SALBUTAMOL [Concomitant]
     Active Substance: ALBUTEROL
     Dosage: 2 INHALATIONS EVERY 5 HOURS WHEN NEEDED
     Route: 055

REACTIONS (19)
  - Blood creatinine increased [Recovering/Resolving]
  - Anion gap increased [Recovered/Resolved]
  - Metabolic acidosis [Recovered/Resolved]
  - Tachypnoea [Recovered/Resolved]
  - PO2 decreased [Recovering/Resolving]
  - PCO2 increased [Recovering/Resolving]
  - Hyponatraemia [Recovering/Resolving]
  - Creatinine renal clearance decreased [Recovering/Resolving]
  - Blood potassium increased [Recovering/Resolving]
  - Blood lactic acid increased [Recovered/Resolved]
  - Blood pH decreased [Recovered/Resolved]
  - Chronic obstructive pulmonary disease [Recovering/Resolving]
  - Acute kidney injury [Recovering/Resolving]
  - Abdominal pain [Recovering/Resolving]
  - Dyspnoea [Recovering/Resolving]
  - Overdose [Unknown]
  - Blood bicarbonate decreased [Recovered/Resolved]
  - Blood urea increased [Recovering/Resolving]
  - Decreased appetite [Recovering/Resolving]
